FAERS Safety Report 9308608 (Version 2)
Quarter: 2014Q2

REPORT INFORMATION
  Report Type: Report from Study
  Country: PL (occurrence: PL)
  Receive Date: 20130524
  Receipt Date: 20140604
  Transmission Date: 20141212
  Serious: Yes (Hospitalization)
  Sender: FDA-Public Use
  Company Number: PL-JNJFOC-20130509311

PATIENT
  Age: 76 Year
  Sex: Female

DRUGS (11)
  1. USTEKINUMAB [Suspect]
     Route: 058
  2. USTEKINUMAB [Suspect]
     Indication: RHEUMATOID ARTHRITIS
     Route: 058
     Dates: start: 20130227, end: 20130327
  3. ACIDUM FOLICUM [Concomitant]
     Dates: start: 200905
  4. AMLOZEK [Concomitant]
     Dates: start: 2004
  5. TRITACE [Concomitant]
     Dates: start: 2004
  6. BISOCARD [Concomitant]
     Route: 048
     Dates: start: 2010
  7. MADOPAR [Concomitant]
     Route: 048
     Dates: start: 2009
  8. METHOTREXATE [Concomitant]
     Route: 048
     Dates: start: 20120822
  9. METHYLPREDNISOLONUM [Concomitant]
     Route: 048
     Dates: start: 20120822
  10. MELOXICAM [Concomitant]
     Route: 048
     Dates: start: 20120822
  11. ADAMON [Concomitant]
     Route: 048
     Dates: start: 201205

REACTIONS (1)
  - Transient ischaemic attack [Recovered/Resolved]
